FAERS Safety Report 13407662 (Version 1)
Quarter: 2017Q2

REPORT INFORMATION
  Report Type: Report from Study
  Country: US (occurrence: US)
  Receive Date: 20170406
  Receipt Date: 20170406
  Transmission Date: 20170830
  Serious: No
  Sender: FDA-Public Use
  Company Number: US-AMGEN-USASP2017046340

PATIENT
  Age: 68 Year
  Sex: Female

DRUGS (1)
  1. ENBREL [Suspect]
     Active Substance: ETANERCEPT
     Indication: PSORIASIS
     Dosage: 50 MG, 2 TIMES/WK
     Route: 065
     Dates: start: 201701

REACTIONS (17)
  - Pain [Recovered/Resolved]
  - Diarrhoea [Unknown]
  - Chills [Unknown]
  - Blood test abnormal [Unknown]
  - Weight decreased [Unknown]
  - Vomiting [Unknown]
  - Erythema [Recovered/Resolved]
  - Headache [Unknown]
  - Hypophagia [Unknown]
  - Fatigue [Unknown]
  - Hyperhidrosis [Unknown]
  - Drug ineffective [Unknown]
  - Lethargy [Unknown]
  - Mobility decreased [Unknown]
  - Musculoskeletal disorder [Not Recovered/Not Resolved]
  - Asthenia [Unknown]
  - Pruritus [Recovered/Resolved]

NARRATIVE: CASE EVENT DATE: 2017
